FAERS Safety Report 6220595-5 (Version None)
Quarter: 2009Q2

REPORT INFORMATION
  Report Type: 
  Country: None (occurrence: None)
  Receive Date: 20090610
  Receipt Date: 20090602
  Transmission Date: 20091009
  Serious: Yes (Other)
  Sender: FDA-Public Use
  Company Number: US-ROCHE-630836

PATIENT
  Sex: Female
  Weight: 55.3 kg

DRUGS (4)
  1. CAPECITABINE [Suspect]
     Indication: BREAST CANCER
     Route: 048
     Dates: start: 20080919, end: 20090430
  2. IXEMPRA KIT [Concomitant]
  3. COUMADIN [Concomitant]
  4. CALCIUM [Concomitant]

REACTIONS (2)
  - DISEASE PROGRESSION [None]
  - HEPATOMEGALY [None]
